FAERS Safety Report 8407305-8 (Version None)
Quarter: 2012Q2

REPORT INFORMATION
  Report Type: 
  Country: None (occurrence: None)
  Receive Date: 20120604
  Receipt Date: 20120528
  Transmission Date: 20120825
  Serious: Yes (Other)
  Sender: FDA-Public Use
  Company Number: BR-PFIZER INC-2012128748

PATIENT
  Age: 77 Year
  Sex: Female

DRUGS (1)
  1. XALATAN [Suspect]
     Indication: GLAUCOMA
     Dosage: 1.5 UG, ONE DROP IN THE LEFT EYE
     Route: 047

REACTIONS (4)
  - RETINAL DETACHMENT [None]
  - FALL [None]
  - MACULAR RUPTURE [None]
  - BLOOD PRESSURE DECREASED [None]
